FAERS Safety Report 25273875 (Version 1)
Quarter: 2025Q2

REPORT INFORMATION
  Report Type: Spontaneous
  Country: US (occurrence: US)
  Receive Date: 20250506
  Receipt Date: 20250506
  Transmission Date: 20250717
  Serious: Yes (Other)
  Sender: UCB
  Company Number: US-UCBSA-2025025755

PATIENT
  Sex: Female

DRUGS (1)
  1. BRIVIACT [Suspect]
     Active Substance: BRIVARACETAM
     Indication: Myoclonic epilepsy
     Dosage: 25 MILLIGRAM, 2X/DAY (BID)
     Route: 065
     Dates: start: 20250428

REACTIONS (2)
  - Tonic convulsion [Unknown]
  - Product use issue [Unknown]

NARRATIVE: CASE EVENT DATE: 20250428
